FAERS Safety Report 16933879 (Version 1)
Quarter: 2019Q4

REPORT INFORMATION
  Report Type: Spontaneous
  Country: US (occurrence: US)
  Receive Date: 20191018
  Receipt Date: 20191018
  Transmission Date: 20200122
  Serious: Yes (Other)
  Sender: FDA-Public Use
  Company Number: US-ALKEM LABORATORIES LIMITED-US-ALKEM-2019-02642

PATIENT
  Age: 56 Year
  Sex: Female

DRUGS (2)
  1. DULOXETINE HYDROCHLORIDE. [Suspect]
     Active Substance: DULOXETINE HYDROCHLORIDE
     Dosage: 60 MILLIGRAM, QD
     Route: 065
  2. DULOXETINE HYDROCHLORIDE. [Suspect]
     Active Substance: DULOXETINE HYDROCHLORIDE
     Indication: PAIN
     Dosage: 30 MILLIGRAM, QD
     Route: 065

REACTIONS (4)
  - Jaundice [Recovering/Resolving]
  - Drug-induced liver injury [Recovering/Resolving]
  - Cholestatic liver injury [Recovering/Resolving]
  - Hepatitis cholestatic [Recovering/Resolving]
